FAERS Safety Report 21413082 (Version 1)
Quarter: 2022Q4

REPORT INFORMATION
  Report Type: Spontaneous
  Country: JP (occurrence: JP)
  Receive Date: 20221005
  Receipt Date: 20221005
  Transmission Date: 20230113
  Serious: Yes (Disabling)
  Sender: FDA-Public Use
  Company Number: JP-BIOCRYST PHARMACEUTICALS, INC.-2021BCR00576

PATIENT
  Age: 60 Year
  Sex: Male
  Weight: 64 kg

DRUGS (9)
  1. ORLADEYO [Suspect]
     Active Substance: BEROTRALSTAT HYDROCHLORIDE
     Indication: Hereditary angioedema with C1 esterase inhibitor deficiency
     Dosage: 150 MG, QD
     Route: 048
     Dates: start: 20211020, end: 20211117
  2. TRANSAMIN [Concomitant]
     Active Substance: TRANEXAMIC ACID
     Indication: Hereditary angioedema
     Dosage: 1500 MG, QD
     Route: 048
     Dates: start: 20110823
  3. BERINERT P [Concomitant]
     Active Substance: HUMAN C1-ESTERASE INHIBITOR
     Indication: Hereditary angioedema
     Dosage: 1500 MG, QD
     Route: 042
     Dates: start: 20150209
  4. FIRAZYR [Concomitant]
     Active Substance: ICATIBANT ACETATE
     Indication: Hereditary angioedema
     Dosage: 30 MG, QD
     Route: 058
     Dates: start: 20190111
  5. BISOPROLOL FUMARATE [Concomitant]
     Active Substance: BISOPROLOL FUMARATE
     Dosage: 2.5 MG, QD
     Route: 048
     Dates: start: 20211222
  6. VALSARTAN [Concomitant]
     Active Substance: VALSARTAN
     Dosage: 40 MG, QD
     Route: 048
     Dates: start: 20211222
  7. DAPAGLIFLOZIN [Concomitant]
     Active Substance: DAPAGLIFLOZIN
     Dosage: 10 MG, QD
     Route: 048
     Dates: start: 20211222
  8. TAKHZYRO [Concomitant]
     Active Substance: LANADELUMAB-FLYO
     Indication: Hereditary angioedema
     Dosage: 300 MG, QD
     Route: 042
     Dates: start: 20220701
  9. OLOPATADINE [Concomitant]
     Active Substance: OLOPATADINE
     Dosage: 10 MG, QD
     Route: 048
     Dates: start: 20220720

REACTIONS (2)
  - Cardiomyopathy [Recovering/Resolving]
  - Palpitations [Unknown]

NARRATIVE: CASE EVENT DATE: 20211117
